FAERS Safety Report 4408341-9 (Version None)
Quarter: 2004Q3

REPORT INFORMATION
  Report Type: 
  Country: None (occurrence: None)
  Receive Date: 20040722
  Receipt Date: 20040706
  Transmission Date: 20050211
  Serious: Yes (Hospitalization, Other)
  Sender: FDA-Public Use
  Company Number: BR-2004-028295

PATIENT
  Age: 34 Year
  Sex: Female
  Weight: 75 kg

DRUGS (2)
  1. YASMIN [Suspect]
     Indication: ORAL CONTRACEPTION
     Dosage: 1 ATB(S), 21D/28D, ORAL
     Route: 048
     Dates: start: 20030701, end: 20040613
  2. CATAFLAM (CICLOFENAC SODIUM) [Concomitant]

REACTIONS (5)
  - CEREBRAL THROMBOSIS [None]
  - CEREBROVASCULAR ACCIDENT [None]
  - COMA [None]
  - OLIGOMENORRHOEA [None]
  - VOMITING [None]
